FAERS Safety Report 5548952-0 (Version None)
Quarter: 2007Q4

REPORT INFORMATION
  Report Type: 
  Country: None (occurrence: None)
  Receive Date: 20071211
  Receipt Date: 20070322
  Transmission Date: 20080405
  Serious: No
  Sender: FDA-Public Use
  Company Number: US-AMGEN-KDL207114

PATIENT
  Sex: Female

DRUGS (1)
  1. ENBREL [Suspect]
     Dates: start: 20020601

REACTIONS (5)
  - HEADACHE [None]
  - INFLUENZA [None]
  - INJECTION SITE IRRITATION [None]
  - INJECTION SITE REACTION [None]
  - NAUSEA [None]
